FAERS Safety Report 13403604 (Version 1)
Quarter: 2017Q2

REPORT INFORMATION
  Report Type: Spontaneous
  Country: CA (occurrence: CA)
  Receive Date: 20170404
  Receipt Date: 20170404
  Transmission Date: 20170830
  Serious: Yes (Life-Threatening, Other)
  Sender: FDA-Public Use
  Company Number: CA-TEVA-756175ACC

PATIENT
  Age: 46 Year
  Sex: Female
  Weight: 53 kg

DRUGS (16)
  1. DEXMEDETOMIDINE. [Suspect]
     Active Substance: DEXMEDETOMIDINE
     Indication: INDUCTION OF ANAESTHESIA
     Route: 042
  2. IRON [Concomitant]
     Active Substance: IRON
  3. LORAZEPAM. [Concomitant]
     Active Substance: LORAZEPAM
  4. PROPOFOL INJECTION [Suspect]
     Active Substance: PROPOFOL
     Route: 042
  5. FENTANYL CITRATE INJECTION [Suspect]
     Active Substance: FENTANYL CITRATE
     Indication: INDUCTION OF ANAESTHESIA
     Route: 042
  6. ROCURONIUM [Concomitant]
     Active Substance: ROCURONIUM BROMIDE
  7. KETAMINE HYDROCHLORIDE INJECTION USP [Suspect]
     Active Substance: KETAMINE HYDROCHLORIDE
     Indication: INDUCTION OF ANAESTHESIA
     Route: 042
  8. ANCEF [Suspect]
     Active Substance: CEFAZOLIN SODIUM
     Indication: ANTIBIOTIC PROPHYLAXIS
     Route: 042
  9. KETOROLAC [Concomitant]
     Active Substance: KETOROLAC\KETOROLAC TROMETHAMINE
  10. NEOSTIGMINE METHYLSULFATE INJECTION USP [Concomitant]
  11. MIDAZOLAM [Suspect]
     Active Substance: MIDAZOLAM HYDROCHLORIDE
     Indication: INDUCTION OF ANAESTHESIA
     Route: 042
  12. DOCUSATE SODIUM. [Concomitant]
     Active Substance: DOCUSATE SODIUM
  13. HEPARIN SODIUM. [Concomitant]
     Active Substance: HEPARIN SODIUM
  14. MULTIVITAMINE(S) [Concomitant]
  15. NAPROSYN [Concomitant]
     Active Substance: NAPROXEN
  16. LIDOCAINE HCL INJECTION USP [Suspect]
     Active Substance: LIDOCAINE HYDROCHLORIDE
     Route: 042

REACTIONS (1)
  - Generalised tonic-clonic seizure [Recovered/Resolved]
